FAERS Safety Report 9400394 (Version 1)
Quarter: 2013Q3

REPORT INFORMATION
  Report Type: Report from Study
  Country: CA (occurrence: CA)
  Receive Date: 20130715
  Receipt Date: 20130715
  Transmission Date: 20140515
  Serious: Yes (Other)
  Sender: FDA-Public Use
  Company Number: CA-JNJFOC-20130705483

PATIENT
  Age: 40 Year
  Sex: Female
  Weight: 69.7 kg

DRUGS (16)
  1. REMICADE [Suspect]
     Indication: CROHN^S DISEASE
     Route: 042
     Dates: start: 20110209
  2. IMURAN [Concomitant]
     Route: 065
  3. ZOPICLONE [Concomitant]
     Route: 065
  4. TOPAMAX [Concomitant]
     Route: 065
  5. CLONIDINE [Concomitant]
     Route: 065
  6. VITAMIN B12 [Concomitant]
     Route: 042
  7. ATIVAN [Concomitant]
     Route: 065
  8. CELEXA [Concomitant]
     Route: 065
  9. NOZINAN [Concomitant]
     Route: 065
  10. SYNTHROID [Concomitant]
     Route: 065
  11. WELLBUTRIN [Concomitant]
     Route: 065
  12. ACYCLOVIR [Concomitant]
     Route: 065
  13. COTRIDIN [Concomitant]
     Route: 065
  14. EFFEXOR [Concomitant]
     Route: 065
  15. CYMBALTA [Concomitant]
     Route: 065
  16. T4 [Concomitant]
     Route: 065

REACTIONS (2)
  - Nephrolithiasis [Recovered/Resolved]
  - Headache [Unknown]
